FAERS Safety Report 7409452-6 (Version None)
Quarter: 2011Q1

REPORT INFORMATION
  Report Type: 
  Country: None (occurrence: None)
  Receive Date: 20110301
  Receipt Date: 20100809
  Transmission Date: 20110831
  Serious: Yes (Hospitalization)
  Sender: FDA-Public Use
  Company Number: RB-14021-2010

PATIENT
  Sex: Male

DRUGS (2)
  1. ALCOHOL (NOT SPECIFIED) [Suspect]
     Indication: PRODUCT USED FOR UNKNOWN INDICATION
  2. SUBOXONE [Suspect]
     Indication: DRUG DEPENDENCE
     Dosage: (0.5 MG SUBLINGUAL)
     Route: 060

REACTIONS (2)
  - ROAD TRAFFIC ACCIDENT [None]
  - LOWER LIMB FRACTURE [None]
